FAERS Safety Report 7395966-4 (Version None)
Quarter: 2011Q2

REPORT INFORMATION
  Report Type: 
  Country: None (occurrence: None)
  Receive Date: 20110406
  Receipt Date: 20110328
  Transmission Date: 20111010
  Serious: No
  Sender: FDA-Public Use
  Company Number: US-BIOGENIDEC-2011BI011809

PATIENT
  Age: 42 Year
  Sex: Female

DRUGS (3)
  1. AVONEX [Suspect]
     Route: 030
     Dates: start: 20030801
  2. AVONEX [Suspect]
     Indication: MULTIPLE SCLEROSIS
     Route: 030
     Dates: start: 20011006, end: 20030801
  3. VICODIN [Concomitant]
     Indication: MULTIPLE SCLEROSIS
     Route: 048

REACTIONS (5)
  - ABDOMINAL PAIN LOWER [None]
  - INFLUENZA LIKE ILLNESS [None]
  - BLOOD URINE PRESENT [None]
  - URINARY TRACT INFECTION [None]
  - URINARY RETENTION [None]
